FAERS Safety Report 22296293 (Version 3)
Quarter: 2023Q2

REPORT INFORMATION
  Report Type: Report from Study
  Country: DE (occurrence: DE)
  Receive Date: 20230508
  Receipt Date: 20230620
  Transmission Date: 20230721
  Serious: Yes (Death, Life-Threatening, Hospitalization)
  Sender: FDA-Public Use
  Company Number: DE-002147023-NVSC2023DE094334

PATIENT

DRUGS (13)
  1. RUXOLITINIB [Suspect]
     Active Substance: RUXOLITINIB
     Indication: Myelofibrosis
     Dosage: 25 MG, BID
     Route: 048
     Dates: start: 20210701, end: 20230410
  2. MAGNESIUM [Concomitant]
     Active Substance: MAGNESIUM
     Indication: Arrhythmia prophylaxis
     Dosage: 400 MG, QD
     Route: 065
     Dates: start: 2011
  3. MAGNESIUM [Concomitant]
     Active Substance: MAGNESIUM
     Indication: Muscle spasms
     Dosage: 200 MG, QD
     Route: 065
     Dates: start: 20210729
  4. DIGOXIN [Concomitant]
     Active Substance: DIGOXIN
     Indication: Atrial fibrillation
     Dosage: 0.2 MG, QD
     Route: 065
     Dates: start: 2017
  5. PANTOPRAZOLE SODIUM [Concomitant]
     Active Substance: PANTOPRAZOLE SODIUM
     Indication: Gastrointestinal disorder prophylaxis
     Dosage: 40 MG, QD
     Route: 065
     Dates: start: 2011
  6. SPIRONOLACTONE [Concomitant]
     Active Substance: SPIRONOLACTONE
     Indication: Prophylaxis
     Dosage: 25 MG, QD
     Route: 065
     Dates: start: 2011
  7. METOPROLOL SUCCINATE [Concomitant]
     Active Substance: METOPROLOL SUCCINATE
     Indication: Atrial fibrillation
     Dosage: 95 MG, BID
     Route: 065
     Dates: start: 2011
  8. MARCUMAR [Concomitant]
     Active Substance: PHENPROCOUMON
     Indication: Atrial fibrillation
     Dosage: UNK, QD
     Route: 065
     Dates: start: 20210728
  9. NALOXONE HYDROCHLORIDE\TILIDINE HYDROCHLORIDE [Concomitant]
     Active Substance: NALOXONE HYDROCHLORIDE\TILIDINE HYDROCHLORIDE
     Indication: Abdominal pain
     Dosage: UNK, PRN (50/4 MG)
     Route: 065
     Dates: start: 20200420
  10. OXAZEPAM [Concomitant]
     Active Substance: OXAZEPAM
     Indication: Insomnia
     Dosage: 20 MG, QD
     Route: 065
     Dates: start: 20200430
  11. AMITRIPTYLINE [Concomitant]
     Active Substance: AMITRIPTYLINE
     Indication: Depression
     Dosage: 50 MG, QD
     Route: 065
     Dates: start: 20220517
  12. ZOPICLONE [Concomitant]
     Active Substance: ZOPICLONE
     Indication: Insomnia
     Dosage: 7.5 MG, PRN
     Route: 065
     Dates: start: 20200420
  13. TORSEMIDE [Concomitant]
     Active Substance: TORSEMIDE
     Indication: Oedema
     Dosage: 10 MG
     Route: 065
     Dates: start: 20221212

REACTIONS (5)
  - SARS-CoV-2 test positive [Unknown]
  - General physical health deterioration [Unknown]
  - Pneumocystis jirovecii infection [Fatal]
  - Sepsis [Recovered/Resolved]
  - Sepsis [Fatal]

NARRATIVE: CASE EVENT DATE: 20220320
